FAERS Safety Report 7723410-3 (Version None)
Quarter: 2011Q3

REPORT INFORMATION
  Report Type: 
  Country: None (occurrence: None)
  Receive Date: 20110901
  Receipt Date: 20110823
  Transmission Date: 20111222
  Serious: Yes (Other)
  Sender: FDA-Public Use
  Company Number: US-ASTRAZENECA-2011SE47794

PATIENT
  Age: 66 Year
  Sex: Female

DRUGS (7)
  1. TENORMIN [Suspect]
  2. NEXIUM [Suspect]
     Route: 048
  3. AMITRIPTYLINE HCL [Suspect]
  4. CRESTOR [Suspect]
     Route: 048
  5. ZOLOFT [Suspect]
  6. FUROSEMIDE [Suspect]
  7. LISINOPRIL [Suspect]

REACTIONS (5)
  - DEMENTIA [None]
  - CEREBRAL HAEMORRHAGE [None]
  - MEMORY IMPAIRMENT [None]
  - FALL [None]
  - HEAD INJURY [None]
